FAERS Safety Report 16842681 (Version 1)
Quarter: 2019Q3

REPORT INFORMATION
  Report Type: Spontaneous
  Country: US (occurrence: US)
  Receive Date: 20190924
  Receipt Date: 20190924
  Transmission Date: 20191005
  Serious: No
  Sender: FDA-Public Use
  Company Number: US-LUPIN PHARMACEUTICALS INC.-2019-05970

PATIENT
  Sex: Female

DRUGS (1)
  1. MISOPROSTOL TABLET, 0.2 MG [Suspect]
     Active Substance: MISOPROSTOL
     Indication: PRODUCT USED FOR UNKNOWN INDICATION
     Dosage: 200 MICROGRAM (2 TABLETS)
     Route: 067
     Dates: start: 20190827, end: 20190827

REACTIONS (3)
  - Product prescribing error [Unknown]
  - Vaginal discharge [Unknown]
  - Product quality issue [Unknown]

NARRATIVE: CASE EVENT DATE: 20190828
